FAERS Safety Report 8131715-X (Version None)
Quarter: 2012Q1

REPORT INFORMATION
  Report Type: 
  Country: None (occurrence: None)
  Receive Date: 20120213
  Receipt Date: 20120206
  Transmission Date: 20120608
  Serious: Yes (Life-Threatening)
  Sender: FDA-Public Use
  Company Number: JP-ASTELLAS-2012US001652

PATIENT
  Sex: Female

DRUGS (2)
  1. GEMCITABINE [Concomitant]
     Indication: PANCREATIC CARCINOMA
     Dosage: UNK
     Route: 041
  2. ERLOTINIB HYDROCHLORIDE [Suspect]
     Indication: PANCREATIC CARCINOMA
     Dosage: 100 MG, UID/QD
     Route: 048
     Dates: start: 20111202, end: 20120129

REACTIONS (1)
  - PNEUMOCYSTIS JIROVECI PNEUMONIA [None]
